FAERS Safety Report 5472767-5 (Version None)
Quarter: 2007Q4

REPORT INFORMATION
  Report Type: 
  Country: None (occurrence: None)
  Receive Date: 20071001
  Receipt Date: 20070925
  Transmission Date: 20080405
  Serious: Yes (Death, Hospitalization)
  Sender: FDA-Public Use
  Company Number: GBWYE369725SEP07

PATIENT
  Age: 67 Year
  Sex: Female

DRUGS (2)
  1. IBUPROFEN [Suspect]
     Dosage: UNKNOWN OVERDOSE
  2. SALICYLIC ACID [Suspect]
     Dosage: UNKNOWN

REACTIONS (9)
  - CARDIAC ARREST [None]
  - COMA [None]
  - CONFUSIONAL STATE [None]
  - DEAFNESS [None]
  - FEELING COLD [None]
  - HYPERVENTILATION [None]
  - HYPOTENSION [None]
  - OVERDOSE [None]
  - VOMITING [None]
